FAERS Safety Report 22200273 (Version 1)
Quarter: 2023Q2

REPORT INFORMATION
  Report Type: Report from Study
  Country: CA (occurrence: None)
  Receive Date: 20230412
  Receipt Date: 20230412
  Transmission Date: 20230721
  Serious: Yes (Other)
  Sender: FDA-Public Use
  Company Number: 2023A081463

PATIENT
  Sex: Female

DRUGS (6)
  1. FASENRA [Suspect]
     Active Substance: BENRALIZUMAB
     Indication: Asthma
     Dosage: 30.0MG UNKNOWN
     Route: 058
     Dates: start: 20190522
  2. XOLAIR [Concomitant]
     Active Substance: OMALIZUMAB
  3. BRICANYL [Concomitant]
     Active Substance: TERBUTALINE SULFATE
     Dosage: 0.5MG 2 INH QID PRN
  4. FORMOTEROL FUMARATE [Concomitant]
     Active Substance: FORMOTEROL FUMARATE
     Dosage: 6MCG 2 INH TWO TIMES A DAY
  5. ASMANEX [Concomitant]
     Active Substance: MOMETASONE FUROATE
     Dosage: 400MCG 2INH TWO TIMES A DAY
  6. BUDESONIDE [Concomitant]
     Active Substance: BUDESONIDE
     Dosage: 1MG/2ML NEBULE

REACTIONS (1)
  - Influenza like illness [Recovered/Resolved]
